FAERS Safety Report 8789351 (Version 1)
Quarter: 2012Q4

REPORT INFORMATION
  Report Type: Spontaneous
  Country: US (occurrence: None)
  Receive Date: 20120910
  Receipt Date: 20120910
  Transmission Date: 20130627
  Serious: Yes (Life-Threatening)
  Sender: FDA-Public Use
  Company Number: None

PATIENT
  Age: 62 Year
  Sex: Male
  Weight: 78.47 kg

DRUGS (2)
  1. ATIVAN [Suspect]
     Indication: ANXIETY
     Dosage: 2 mg .5 qd po
     Route: 048
     Dates: start: 20120905
  2. ALPAZOLAM [Suspect]
     Dosage: 1 mg qd po
     Route: 048

REACTIONS (4)
  - Eye swelling [None]
  - Pharyngeal oedema [None]
  - Burning sensation [None]
  - Pruritus [None]
